FAERS Safety Report 8907845 (Version 1)
Quarter: 2012Q4

REPORT INFORMATION
  Report Type: Report from Study
  Country: JP (occurrence: JP)
  Receive Date: 20121114
  Receipt Date: 20121114
  Transmission Date: 20130627
  Serious: Yes (Life-Threatening, Other)
  Sender: FDA-Public Use
  Company Number: JP-CELGENEUS-087-50794-12111420

PATIENT
  Age: 51 Year
  Sex: Male
  Weight: 75 kg

DRUGS (23)
  1. VIDAZA [Suspect]
     Indication: MDS
     Dosage: 75 milligram/sq. meter
     Route: 058
     Dates: start: 20120207, end: 20120213
  2. VIDAZA [Suspect]
     Dosage: 75 milligram/sq. meter
     Route: 058
     Dates: start: 20120306, end: 20120312
  3. VIDAZA [Suspect]
     Dosage: 75 milligram/sq. meter
     Route: 058
     Dates: start: 20120418, end: 20120420
  4. VIDAZA [Suspect]
     Dosage: 75 milligram/sq. meter
     Route: 058
     Dates: start: 20120423, end: 20120426
  5. VIDAZA [Suspect]
     Dosage: 75 milligram/sq. meter
     Route: 058
     Dates: start: 20120516, end: 20120518
  6. VIDAZA [Suspect]
     Dosage: 75 milligram/sq. meter
     Route: 058
     Dates: start: 20120521, end: 20120524
  7. VIDAZA [Suspect]
     Dosage: 75 milligram/sq. meter
     Route: 058
     Dates: start: 20120613, end: 20120615
  8. VIDAZA [Suspect]
     Dosage: 75 milligram/sq. meter
     Route: 058
     Dates: start: 20120712, end: 20120713
  9. VIDAZA [Suspect]
     Dosage: 75 milligram/sq. meter
     Route: 058
     Dates: start: 20120712, end: 20120720
  10. GRANISETRON [Concomitant]
     Indication: DRUG USE FOR UNKNOWN INDICATION
     Route: 065
     Dates: start: 20120207, end: 20120213
  11. CRESTOR [Concomitant]
     Indication: DRUG USE FOR UNKNOWN INDICATION
     Route: 065
     Dates: end: 20120223
  12. GASTER [Concomitant]
     Indication: DRUG USE FOR UNKNOWN INDICATION
     Route: 065
     Dates: end: 20120314
  13. BUFFERIN [Concomitant]
     Indication: DRUG USE FOR UNKNOWN INDICATION
     Dosage: 81 Milligram
     Route: 065
  14. EPADEL S [Concomitant]
     Indication: DRUG USE FOR UNKNOWN INDICATION
     Route: 065
     Dates: end: 20120314
  15. PLAVIX [Concomitant]
     Indication: DRUG USE FOR UNKNOWN INDICATION
     Route: 065
     Dates: end: 20120314
  16. MARZULENE-S [Concomitant]
     Indication: DRUG USE FOR UNKNOWN INDICATION
     Route: 065
     Dates: end: 20120314
  17. YTRIL [Concomitant]
     Indication: DRUG USE FOR UNKNOWN INDICATION
     Route: 065
     Dates: start: 20120207, end: 20120314
  18. YTRIL [Concomitant]
     Route: 065
     Dates: start: 20120306, end: 20120312
  19. YTRIL [Concomitant]
     Route: 065
     Dates: start: 20120420, end: 20120426
  20. YTRIL [Concomitant]
     Route: 065
     Dates: start: 20120605, end: 2012
  21. MAGLAX [Concomitant]
     Indication: DRUG USE FOR UNKNOWN INDICATION
     Route: 065
     Dates: start: 20120208, end: 2012
  22. PURSENNID [Concomitant]
     Indication: DRUG USE FOR UNKNOWN INDICATION
     Route: 065
     Dates: start: 20120208, end: 2012
  23. ZYLORIC [Concomitant]
     Indication: DRUG USE FOR UNKNOWN INDICATION
     Route: 065
     Dates: start: 20120411, end: 20120923

REACTIONS (4)
  - Neutrophil count decreased [Not Recovered/Not Resolved]
  - Platelet count decreased [Recovering/Resolving]
  - Red blood cell count decreased [Recovering/Resolving]
  - Anaemia [Recovering/Resolving]
